FAERS Safety Report 7017543-7 (Version None)
Quarter: 2010Q3

REPORT INFORMATION
  Report Type: 
  Country: None (occurrence: None)
  Receive Date: 20100928
  Receipt Date: 20100908
  Transmission Date: 20110219
  Serious: Yes (Other)
  Sender: FDA-Public Use
  Company Number: US-BAYER-201034435NA

PATIENT
  Age: 27 Year
  Sex: Female
  Weight: 73 kg

DRUGS (2)
  1. YAZ [Suspect]
     Indication: PREMENSTRUAL SYNDROME
     Route: 048
     Dates: start: 20060701, end: 20080201
  2. MEPERGAN [Concomitant]

REACTIONS (11)
  - ABDOMINAL PAIN UPPER [None]
  - BACK PAIN [None]
  - CHOLECYSTITIS CHRONIC [None]
  - CHOLELITHIASIS [None]
  - FATIGUE [None]
  - INCISIONAL HERNIA [None]
  - NAUSEA [None]
  - NEPHROLITHIASIS [None]
  - POLLAKIURIA [None]
  - VOMITING [None]
  - WEIGHT DECREASED [None]
